FAERS Safety Report 9219401 (Version 1)
Quarter: 2013Q2

REPORT INFORMATION
  Report Type: Spontaneous
  Country: US (occurrence: None)
  Receive Date: 20130408
  Receipt Date: 20130408
  Transmission Date: 20140414
  Serious: No
  Sender: FDA-Public Use
  Company Number: None

PATIENT
  Age: 47 Year
  Sex: Male
  Weight: 99.79 kg

DRUGS (2)
  1. VANCOMYCIN [Suspect]
     Dosage: 1GM  Q12   IV
     Route: 042
     Dates: start: 20130211, end: 20130302
  2. VANCOMYCIN [Suspect]

REACTIONS (2)
  - Pruritus [None]
  - Urticaria [None]
